FAERS Safety Report 10055986 (Version 1)
Quarter: 2014Q2

REPORT INFORMATION
  Report Type: Spontaneous
  Country: US (occurrence: US)
  Receive Date: 20140403
  Receipt Date: 20140403
  Transmission Date: 20141212
  Serious: No
  Sender: FDA-Public Use
  Company Number: US-PFIZER INC-2014090216

PATIENT
  Age: 51 Year
  Sex: Male
  Weight: 90.7 kg

DRUGS (2)
  1. LATANOPROST [Suspect]
     Indication: INTRAOCULAR PRESSURE INCREASED
     Dosage: UNK, 1X/DAY
  2. ISTALOL [Suspect]
     Indication: INTRAOCULAR PRESSURE TEST
     Dosage: UNK, 1X/DAY

REACTIONS (1)
  - Drug ineffective [Recovered/Resolved]
